FAERS Safety Report 9275025 (Version 1)
Quarter: 2013Q2

REPORT INFORMATION
  Report Type: Spontaneous
  Country: US (occurrence: None)
  Receive Date: 20130430
  Receipt Date: 20130430
  Transmission Date: 20140414
  Serious: Yes (Life-Threatening, Hospitalization, Other)
  Sender: FDA-Public Use
  Company Number: 2013P1005056

PATIENT
  Sex: Female

DRUGS (3)
  1. BUTALBITAL ACETAMINOPHEN + CAFFEINE [Suspect]
     Indication: MIGRAINE
     Dosage: QID
     Route: 048
     Dates: start: 2006
  2. BUTALBITAL ACETAMINOPHEN + CAFFEINE [Suspect]
     Indication: FIBROMYALGIA
     Dosage: QID
     Route: 048
     Dates: start: 2006
  3. MORCO [Concomitant]

REACTIONS (2)
  - Aortic aneurysm [None]
  - Aortic aneurysm rupture [None]
